FAERS Safety Report 4312158-3 (Version None)
Quarter: 2004Q1

REPORT INFORMATION
  Report Type: 
  Country: None (occurrence: None)
  Receive Date: 20040303
  Receipt Date: 20021204
  Transmission Date: 20041129
  Serious: Yes (Other)
  Sender: FDA-Public Use
  Company Number: NSADSS2003003478

PATIENT
  Age: 64 Year
  Sex: Female
  Weight: 92 kg

DRUGS (47)
  1. REMICADE [Suspect]
     Indication: RHEUMATOID ARTHRITIS
     Dosage: INTRAVENOUS
     Route: 042
     Dates: start: 19980115
  2. REMICADE [Suspect]
     Indication: RHEUMATOID ARTHRITIS
     Dosage: INTRAVENOUS
     Route: 042
     Dates: start: 19980130
  3. REMICADE [Suspect]
     Indication: RHEUMATOID ARTHRITIS
     Dosage: INTRAVENOUS
     Route: 042
     Dates: start: 19980226
  4. REMICADE [Suspect]
     Indication: RHEUMATOID ARTHRITIS
     Dosage: INTRAVENOUS
     Route: 042
     Dates: start: 19980423
  5. REMICADE [Suspect]
     Indication: RHEUMATOID ARTHRITIS
     Dosage: INTRAVENOUS
     Route: 042
     Dates: start: 19980618
  6. REMICADE [Suspect]
     Indication: RHEUMATOID ARTHRITIS
     Dosage: INTRAVENOUS
     Route: 042
     Dates: start: 19980806
  7. REMICADE [Suspect]
     Indication: RHEUMATOID ARTHRITIS
     Dosage: INTRAVENOUS
     Route: 042
     Dates: start: 19981008
  8. REMICADE [Suspect]
     Indication: RHEUMATOID ARTHRITIS
     Dosage: INTRAVENOUS
     Route: 042
     Dates: start: 19981203
  9. REMICADE [Suspect]
     Indication: RHEUMATOID ARTHRITIS
     Dosage: INTRAVENOUS
     Route: 042
     Dates: start: 19990128
  10. REMICADE [Suspect]
     Indication: RHEUMATOID ARTHRITIS
     Dosage: INTRAVENOUS
     Route: 042
     Dates: start: 19990325
  11. REMICADE [Suspect]
     Indication: RHEUMATOID ARTHRITIS
     Dosage: INTRAVENOUS
     Route: 042
     Dates: start: 19990520
  12. REMICADE [Suspect]
     Indication: RHEUMATOID ARTHRITIS
     Dosage: INTRAVENOUS
     Route: 042
     Dates: start: 19990722
  13. REMICADE [Suspect]
     Indication: RHEUMATOID ARTHRITIS
     Dosage: INTRAVENOUS
     Route: 042
     Dates: start: 19990909
  14. REMICADE [Suspect]
     Indication: RHEUMATOID ARTHRITIS
     Dosage: INTRAVENOUS
     Route: 042
     Dates: start: 19991104
  15. REMICADE [Suspect]
     Indication: RHEUMATOID ARTHRITIS
     Dosage: INTRAVENOUS
     Route: 042
     Dates: start: 20000106
  16. REMICADE [Suspect]
     Indication: RHEUMATOID ARTHRITIS
     Dosage: INTRAVENOUS
     Route: 042
     Dates: start: 20000413
  17. REMICADE [Suspect]
     Indication: RHEUMATOID ARTHRITIS
     Dosage: INTRAVENOUS
     Route: 042
     Dates: start: 20000427
  18. REMICADE [Suspect]
     Indication: RHEUMATOID ARTHRITIS
     Dosage: INTRAVENOUS
     Route: 042
     Dates: start: 20000525
  19. REMICADE [Suspect]
     Indication: RHEUMATOID ARTHRITIS
     Dosage: INTRAVENOUS
     Route: 042
     Dates: start: 20000720
  20. REMICADE [Suspect]
     Indication: RHEUMATOID ARTHRITIS
     Dosage: INTRAVENOUS
     Route: 042
     Dates: start: 20000914
  21. REMICADE [Suspect]
     Indication: RHEUMATOID ARTHRITIS
     Dosage: INTRAVENOUS
     Route: 042
     Dates: start: 20001109
  22. REMICADE [Suspect]
     Indication: RHEUMATOID ARTHRITIS
     Dosage: INTRAVENOUS
     Route: 042
     Dates: start: 20010104
  23. REMICADE [Suspect]
     Indication: RHEUMATOID ARTHRITIS
     Dosage: INTRAVENOUS
     Route: 042
     Dates: start: 20010301
  24. REMICADE [Suspect]
     Indication: RHEUMATOID ARTHRITIS
     Dosage: INTRAVENOUS
     Route: 042
     Dates: start: 20010426
  25. REMICADE [Suspect]
     Indication: RHEUMATOID ARTHRITIS
     Dosage: INTRAVENOUS
     Route: 042
     Dates: start: 20010621
  26. REMICADE [Suspect]
     Indication: RHEUMATOID ARTHRITIS
     Dosage: INTRAVENOUS
     Route: 042
     Dates: start: 20010816
  27. REMICADE [Suspect]
     Indication: RHEUMATOID ARTHRITIS
     Dosage: INTRAVENOUS
     Route: 042
     Dates: start: 20011011
  28. REMICADE [Suspect]
     Indication: RHEUMATOID ARTHRITIS
     Dosage: INTRAVENOUS
     Route: 042
     Dates: start: 20011206
  29. REMICADE [Suspect]
     Indication: RHEUMATOID ARTHRITIS
     Dosage: INTRAVENOUS
     Route: 042
     Dates: start: 20020131
  30. PLACEBO (PLACEBO) [Suspect]
     Dosage: INTRAVENOUS
     Route: 042
     Dates: start: 19980326
  31. PLACEBO (PLACEBO) [Suspect]
     Dosage: INTRAVENOUS
     Route: 042
     Dates: start: 19980521
  32. PLACEBO (PLACEBO) [Suspect]
     Dosage: INTRAVENOUS
     Route: 042
     Dates: start: 19980716
  33. PLACEBO (PLACEBO) [Suspect]
     Dosage: INTRAVENOUS
     Route: 042
     Dates: start: 19980910
  34. PLACEBO (PLACEBO) [Suspect]
     Dosage: INTRAVENOUS
     Route: 042
     Dates: start: 19981105
  35. PLACEBO (PLACEBO) [Suspect]
     Dosage: INTRAVENOUS
     Route: 042
     Dates: start: 19981230
  36. PLACEBO (PLACEBO) [Suspect]
     Dosage: INTRAVENOUS
     Route: 042
     Dates: start: 19990225
  37. PLACEBO (PLACEBO) [Suspect]
     Dosage: INTRAVENOUS
     Route: 042
     Dates: start: 19990422
  38. PLACEBO (PLACEBO) [Suspect]
     Dosage: INTRAVENOUS
     Route: 042
     Dates: start: 19990617
  39. PLACEBO (PLACEBO) [Suspect]
     Dosage: INTRAVENOUS
     Route: 042
     Dates: start: 19990819
  40. PLACEBO (PLACEBO) [Suspect]
     Dosage: INTRAVENOUS
     Route: 042
     Dates: start: 19991007
  41. PLACEBO (PLACEBO) [Suspect]
     Dosage: INTRAVENOUS
     Route: 042
     Dates: start: 19991208
  42. METHOTREXATE [Concomitant]
  43. THYROXINE (LEVOTHYROXINE SODIUM) [Concomitant]
  44. QUININE SULFATE (QUININE SULFATE) [Concomitant]
  45. FOLIC ACID [Concomitant]
  46. NABUMETONE [Concomitant]
  47. KAPAKE (PANADEINE CO) [Concomitant]

REACTIONS (2)
  - LARYNGEAL CANCER [None]
  - TONGUE NEOPLASM MALIGNANT STAGE UNSPECIFIED [None]
